FAERS Safety Report 9991899 (Version 1)
Quarter: 2014Q1

REPORT INFORMATION
  Report Type: Spontaneous
  Country: US (occurrence: US)
  Receive Date: 20140310
  Receipt Date: 20140310
  Transmission Date: 20141002
  Serious: Yes (Other)
  Sender: FDA-Public Use
  Company Number: PHEH2014US004421

PATIENT
  Sex: Female

DRUGS (14)
  1. EXFORGE HCT [Suspect]
     Dosage: UNK UKN, UNK
  2. VENLAFAXINE HYDROCHLORIDE [Concomitant]
     Dosage: 50 MG, UNK
  3. VITAMIN D [Concomitant]
     Dosage: 1 DF, PER WEEK
  4. KLONOPIN [Concomitant]
     Dosage: UNK UKN, UNK
  5. OXYCODONE / ACETAMINOPHEN [Concomitant]
     Dosage: 1 DF (10MG OXYCO/325MG ACETAMINOPHEN), UNK
  6. FLEXERIL [Concomitant]
     Dosage: UNK UKN, UNK
  7. LEVOTHYROXINE [Concomitant]
     Dosage: UNK UKN, UNK
  8. THYROID [Concomitant]
     Dosage: 10 MG, UNK
  9. LANTUS [Concomitant]
     Dosage: UNK UKN, UNK
  10. OPANA [Concomitant]
     Indication: PAIN
  11. MULTIVITAMIN [Concomitant]
     Dosage: UNK UKN, UNK
  12. CELEBREX [Concomitant]
     Dosage: UNK UKN, UNK
  13. CYCLOBENZAPRINE HYDROCHLORIDE [Concomitant]
  14. NOVOLOG [Concomitant]

REACTIONS (9)
  - Cerebrovascular accident [Unknown]
  - Dysgraphia [Unknown]
  - Movement disorder [Unknown]
  - Dissociation [Unknown]
  - Memory impairment [Unknown]
  - Panic attack [Unknown]
  - Pain [Unknown]
  - Fibromyalgia [Unknown]
  - Muscle spasms [Unknown]
